FAERS Safety Report 13656694 (Version 1)
Quarter: 2017Q2

REPORT INFORMATION
  Report Type: Spontaneous
  Country: US (occurrence: US)
  Receive Date: 20170615
  Receipt Date: 20170615
  Transmission Date: 20170830
  Serious: Yes (Life-Threatening, Hospitalization, Other)
  Sender: FDA-Public Use
  Company Number: US-PFIZER INC-2017260212

PATIENT
  Age: 34 Year
  Sex: Male
  Weight: 118 kg

DRUGS (3)
  1. SOMAVERT [Suspect]
     Active Substance: PEGVISOMANT
     Dosage: 1 DF, 2X/DAY
     Route: 058
     Dates: end: 201610
  2. TESTOSTERONE. [Concomitant]
     Active Substance: TESTOSTERONE
     Indication: PITUITARY TUMOUR
     Dosage: 2 MG, EVERY TWO WEEKS
     Route: 030
  3. SOMAVERT [Suspect]
     Active Substance: PEGVISOMANT
     Indication: GROWTH HORMONE-PRODUCING PITUITARY TUMOUR
     Dosage: 1 DF, 1X/DAY
     Route: 058
     Dates: end: 201610

REACTIONS (4)
  - Myalgia [Recovering/Resolving]
  - Pituitary tumour recurrent [Unknown]
  - Arthralgia [Recovering/Resolving]
  - Diabetes insipidus [Recovered/Resolved]

NARRATIVE: CASE EVENT DATE: 20161031
